FAERS Safety Report 22012118 (Version 1)
Quarter: 2023Q1

REPORT INFORMATION
  Report Type: Spontaneous
  Country: CN (occurrence: CN)
  Receive Date: 20230220
  Receipt Date: 20230220
  Transmission Date: 20230418
  Serious: Yes (Hospitalization, Other)
  Sender: FDA-Public Use
  Company Number: None

PATIENT
  Age: 11 Year
  Sex: Female
  Weight: 27.3 kg

DRUGS (6)
  1. CYCLOPHOSPHAMIDE [Suspect]
     Active Substance: CYCLOPHOSPHAMIDE
     Indication: Acute lymphocytic leukaemia
     Dosage: 0.6 G, QD, DILUTED WITH 4:1 GLUCOSE SODIUM CHLORIDE 250 ML, AS A PART OF COAD REGIMEN
     Route: 041
     Dates: start: 20221212, end: 20221212
  2. SODIUM CHLORIDE [Suspect]
     Active Substance: SODIUM CHLORIDE
     Indication: Medication dilution
     Dosage: 50 ML, QD, USED TO DILUTE VINDESINE SULFATE 3 MG
     Route: 041
     Dates: start: 20221212, end: 20221212
  3. SODIUM CHLORIDE [Suspect]
     Active Substance: SODIUM CHLORIDE
     Dosage: 1 ML, BID, USED TO DILUTE CYTARABINE 0.05 G
     Route: 058
     Dates: start: 20221212, end: 20221216
  4. DEXTROSE\SODIUM CHLORIDE [Suspect]
     Active Substance: DEXTROSE\SODIUM CHLORIDE
     Indication: Medication dilution
     Dosage: 250 ML, QD, USED TO DILUTE CYCLOPHOSPHAMIDE 0.6 G
     Route: 041
     Dates: start: 20221212, end: 20221212
  5. VINDESINE SULFATE [Suspect]
     Active Substance: VINDESINE SULFATE
     Indication: Acute lymphocytic leukaemia
     Dosage: 3 MG, QD, DILUTED WITH 0.9% SODIUM CHLORIDE 50 ML, AS A PART OF COAD REGIMEN
     Route: 041
     Dates: start: 20221212, end: 20221212
  6. CYTARABINE [Suspect]
     Active Substance: CYTARABINE
     Indication: Acute lymphocytic leukaemia
     Dosage: 0.05 G, BID, DILUTED 0.9% SODIUM CHLORIDE 1 ML, AS A PART OF COAD REGIMEN
     Route: 058
     Dates: start: 20221212, end: 20221216

REACTIONS (1)
  - Myelosuppression [Recovering/Resolving]

NARRATIVE: CASE EVENT DATE: 20221223
